FAERS Safety Report 7520327-4 (Version None)
Quarter: 2011Q2

REPORT INFORMATION
  Report Type: 
  Country: None (occurrence: None)
  Receive Date: 20110602
  Receipt Date: 20110527
  Transmission Date: 20111010
  Serious: Yes (Hospitalization, Other)
  Sender: FDA-Public Use
  Company Number: US-ABBOTT-11P-163-0729131-00

PATIENT
  Age: 16 Year
  Sex: Male

DRUGS (2)
  1. TETRAHYDROCANNABINOL [Concomitant]
     Indication: PRODUCT USED FOR UNKNOWN INDICATION
  2. NIACIN [Suspect]
     Indication: PRODUCT USED FOR UNKNOWN INDICATION
     Dosage: 4 TAB EVERY 4 HRS FOR 2 DAYS,  26 PILLS

REACTIONS (4)
  - MYALGIA [None]
  - TOXICITY TO VARIOUS AGENTS [None]
  - HYPOGLYCAEMIA [None]
  - METABOLIC ACIDOSIS [None]
